FAERS Safety Report 7757536-5 (Version None)
Quarter: 2011Q3

REPORT INFORMATION
  Report Type: 
  Country: None (occurrence: None)
  Receive Date: 20110916
  Receipt Date: 20091121
  Transmission Date: 20111222
  Serious: Yes (Other)
  Sender: FDA-Public Use
  Company Number: ES-BAYER-2011-085075

PATIENT
  Sex: Female

DRUGS (10)
  1. ACETYLSALICYLIC ACID SRT [Suspect]
     Route: 064
  2. ABCIXIMAB [Concomitant]
     Route: 064
  3. ACETYLSALICYLIC ACID SRT [Suspect]
     Route: 064
  4. HEPARIN [Concomitant]
     Route: 064
  5. ADENOSINE [Concomitant]
     Route: 064
  6. CLOPIDOGREL [Suspect]
     Route: 064
  7. CLOPIDOGREL [Suspect]
     Route: 064
  8. HEPARIN [Concomitant]
     Route: 064
  9. ABCIXIMAB [Concomitant]
     Route: 064
  10. ADENOSINE [Concomitant]
     Route: 064

REACTIONS (3)
  - MITRAL VALVE INCOMPETENCE [None]
  - ATRIAL SEPTAL DEFECT [None]
  - VENTRICULAR SEPTAL DEFECT [None]
